FAERS Safety Report 10176329 (Version 1)
Quarter: 2014Q2

REPORT INFORMATION
  Report Type: Spontaneous
  Country: DE (occurrence: DE)
  Receive Date: 20140516
  Receipt Date: 20140516
  Transmission Date: 20141212
  Serious: Yes (Life-Threatening, Hospitalization)
  Sender: FDA-Public Use
  Company Number: DE-ASTRAZENECA-2014SE32864

PATIENT
  Age: 74 Year
  Sex: Male

DRUGS (21)
  1. QUETIAPINE [Suspect]
     Route: 048
     Dates: start: 20131103, end: 20131103
  2. QUETIAPINE [Interacting]
     Route: 048
     Dates: start: 20131104, end: 20131105
  3. QUETIAPINE [Interacting]
     Route: 048
     Dates: start: 20131106, end: 20131108
  4. QUETIAPINE [Interacting]
     Route: 048
     Dates: start: 20131109, end: 20131112
  5. QUETIAPINE [Interacting]
     Route: 048
     Dates: start: 20131113, end: 20131115
  6. QUETIAPINE [Interacting]
     Route: 048
     Dates: start: 20131116, end: 20131118
  7. QUETIAPINE [Interacting]
     Route: 048
     Dates: start: 20131119, end: 20131121
  8. QUETIAPINE [Interacting]
     Route: 048
     Dates: start: 20131122, end: 20140216
  9. QUETIAPINE [Interacting]
     Route: 048
     Dates: start: 20140217, end: 20140224
  10. QUETIAPINE [Interacting]
     Route: 048
     Dates: start: 20140225, end: 20140303
  11. QUETIAPINE [Interacting]
     Route: 048
     Dates: start: 20140304, end: 20140306
  12. QUETIAPINE [Interacting]
     Route: 048
     Dates: start: 20140307, end: 20140310
  13. QUETIAPINE [Interacting]
     Route: 048
     Dates: start: 20140311
  14. VALPROAT [Interacting]
     Route: 048
     Dates: start: 20130301, end: 20131101
  15. VALPROAT [Interacting]
     Route: 048
     Dates: start: 20131102, end: 20131110
  16. VALPROAT [Interacting]
     Route: 048
     Dates: start: 20131111
  17. ABILIFY [Concomitant]
     Route: 048
     Dates: start: 20131101, end: 20131112
  18. ABILIFY [Concomitant]
     Route: 048
     Dates: start: 20131113, end: 20131115
  19. ABILIFY [Concomitant]
     Route: 048
     Dates: start: 20131116, end: 20131215
  20. FINASTERIDE [Concomitant]
     Route: 048
     Dates: start: 20131101
  21. AFUZOSINE [Concomitant]
     Route: 048
     Dates: start: 20131101

REACTIONS (3)
  - Drug interaction [Recovered/Resolved]
  - Depressed level of consciousness [Recovered/Resolved]
  - Parkinsonism [Recovering/Resolving]
